FAERS Safety Report 5118798-6 (Version None)
Quarter: 2006Q3

REPORT INFORMATION
  Report Type: 
  Country: None (occurrence: None)
  Receive Date: 20060927
  Receipt Date: 20060911
  Transmission Date: 20061208
  Serious: Yes (Hospitalization)
  Sender: FDA-Public Use
  Company Number: 14249

PATIENT
  Age: 68 Year
  Sex: Male
  Weight: 67.1 kg

DRUGS (23)
  1. CYTARABINE [Suspect]
     Indication: ACUTE MYELOID LEUKAEMIA
     Dates: start: 20060519
  2. MITOXANTRONE [Suspect]
     Indication: ACUTE MYELOID LEUKAEMIA
     Dates: start: 20060519
  3. ETOPOSIDE [Suspect]
     Indication: ACUTE MYELOID LEUKAEMIA
     Dates: start: 20060519
  4. CEP-701 [Suspect]
     Indication: ACUTE MYELOID LEUKAEMIA
     Dosage: 80 MG BID PO
     Route: 048
     Dates: start: 20060525, end: 20060529
  5. CEP-701 [Suspect]
     Indication: ACUTE MYELOID LEUKAEMIA
     Dates: start: 20060607, end: 20060612
  6. AMBISOME [Concomitant]
  7. ZOSYN [Concomitant]
  8. VANCOMYCIN [Concomitant]
  9. VALTREX [Concomitant]
  10. DEXAMETHASONE TAB [Concomitant]
  11. LASIX [Concomitant]
  12. DIPHENHYDRAMINE HCL [Concomitant]
  13. ACETAMINOPHEN [Concomitant]
  14. ALLOPURINOL [Concomitant]
  15. SODIUM CHLORIDE [Concomitant]
  16. ANZEMET [Concomitant]
  17. FLUOROMETHOLONE [Concomitant]
  18. PREGABALIN [Concomitant]
  19. CASPOFUNGIN ACETATE [Concomitant]
  20. VITAMINS NOS [Concomitant]
  21. MORPHINE [Concomitant]
  22. PIPERACILLIN AND TAZOBACTAM [Concomitant]
  23. ACYCLOVIR [Concomitant]

REACTIONS (5)
  - ENTEROCOCCAL BACTERAEMIA [None]
  - FEBRILE NEUTROPENIA [None]
  - HYPERNATRAEMIA [None]
  - MUCOSAL INFLAMMATION [None]
  - PNEUMONIA [None]
